FAERS Safety Report 20042452 (Version 1)
Quarter: 2021Q4

REPORT INFORMATION
  Report Type: Spontaneous
  Country: US (occurrence: US)
  Receive Date: 20211108
  Receipt Date: 20211108
  Transmission Date: 20220303
  Serious: No
  Sender: FDA-Public Use
  Company Number: US-TEVA-2021-US-1970937

PATIENT
  Sex: Male

DRUGS (1)
  1. MUPIROCIN [Suspect]
     Active Substance: MUPIROCIN
     Indication: Rhinitis
     Route: 065

REACTIONS (3)
  - Off label use [Unknown]
  - Application site haemorrhage [Unknown]
  - Application site scab [Unknown]
